FAERS Safety Report 12892470 (Version 1)
Quarter: 2016Q4

REPORT INFORMATION
  Report Type: Spontaneous
  Country: US (occurrence: US)
  Receive Date: 20161028
  Receipt Date: 20161028
  Transmission Date: 20170207
  Serious: No
  Sender: FDA-Public Use
  Company Number: US-PFIZER INC-2016314911

PATIENT
  Age: 72 Year
  Sex: Female
  Weight: 103.5 kg

DRUGS (18)
  1. VITAMIN B12 [Concomitant]
     Active Substance: CYANOCOBALAMIN
     Dosage: 500 UG, DAILY
     Route: 048
  2. ZOFRAN [Concomitant]
     Active Substance: ONDANSETRON HYDROCHLORIDE
     Indication: NAUSEA
     Dosage: UNK UNK, AS NEEDED
  3. PANTOPRAZOLE [Concomitant]
     Active Substance: PANTOPRAZOLE SODIUM
     Dosage: 40 MG, DAILY
     Route: 048
  4. FERROUS GLUCONATE [Concomitant]
     Active Substance: FERROUS GLUCONATE
     Dosage: 324 MG, DAILY [38 MG ELEMENTAL IRON]
     Route: 048
  5. ZANTAC [Concomitant]
     Active Substance: RANITIDINE HYDROCHLORIDE
     Indication: DYSPEPSIA
     Dosage: 150 MG, AS NEEDED; (DAILY)
     Route: 048
  6. SIMVASTATIN. [Concomitant]
     Active Substance: SIMVASTATIN
     Dosage: 20 MG, 1X/DAY; (AT BEDTIME)
     Route: 048
  7. CARTIA XT [Concomitant]
     Active Substance: DILTIAZEM HYDROCHLORIDE
     Dosage: 180 MG, 2X/DAY
     Route: 048
  8. CENTRUM SILVER [Concomitant]
     Active Substance: MINERALS\VITAMINS
     Dosage: UNK UNK, DAILY; (0.4-300-250 MG-MCG-MCG)
     Route: 048
  9. XANAX [Concomitant]
     Active Substance: ALPRAZOLAM
     Dosage: 0.5 MG, AS NEEDED; (1 BY MOUTH DAILY)
     Route: 048
  10. RESVERATROL [Concomitant]
     Active Substance: RESVERATROL
     Dosage: 250 MG, DAILY
     Route: 048
  11. FISH OIL OMEGA 3 [Concomitant]
     Dosage: UNK UNK, DAILY [900-1, 400 MG]
     Route: 048
  12. TIKOSYN [Suspect]
     Active Substance: DOFETILIDE
     Dosage: 500 UG, 2X/DAY; (Q12H)
     Route: 048
     Dates: start: 20160603
  13. TIKOSYN [Suspect]
     Active Substance: DOFETILIDE
     Dosage: 250 UG, 2X/DAY
     Route: 048
  14. XARELTO [Concomitant]
     Active Substance: RIVAROXABAN
     Dosage: 20 MG, DAILY; (EVERY EVENING/WITH DINNER)
     Route: 048
  15. TOPROL XL [Concomitant]
     Active Substance: METOPROLOL SUCCINATE
     Dosage: 50 MG, 2X/DAY
     Route: 048
  16. FOLCAPS OMEGA 3 [Concomitant]
     Dosage: 1 DF, DAILY
     Route: 048
  17. VITAMIN E [Concomitant]
     Active Substance: .ALPHA.-TOCOPHEROL
     Dosage: 400 IU, DAILY
     Route: 048
  18. ANTACID PLUS ANTI-GAS [Concomitant]
     Dosage: 1 DF, AS NEEDED; (1,000 MG-60 MG; 1 BY MOUTH DAILY)
     Route: 048

REACTIONS (2)
  - Fatigue [Unknown]
  - Weight increased [Unknown]
